FAERS Safety Report 11000951 (Version 1)
Quarter: 2015Q2

REPORT INFORMATION
  Report Type: Spontaneous
  Country: US (occurrence: US)
  Receive Date: 20150408
  Receipt Date: 20150408
  Transmission Date: 20150821
  Serious: No
  Sender: FDA-Public Use
  Company Number: US-SA-2014SA146708

PATIENT
  Sex: Female

DRUGS (2)
  1. ALLEGRA [Suspect]
     Active Substance: FEXOFENADINE HYDROCHLORIDE
     Route: 048
     Dates: start: 20141022
  2. DOXEPIN [Suspect]
     Active Substance: DOXEPIN
     Dosage: TAKING DOXEPIN AND HAD TAKEN A HIGHER DOSE
     Route: 065

REACTIONS (2)
  - Overdose [Unknown]
  - Insomnia [Unknown]

NARRATIVE: CASE EVENT DATE: 20141022
